FAERS Safety Report 9781727 (Version 2)
Quarter: 2014Q1

REPORT INFORMATION
  Report Type: Report from Study
  Country: US (occurrence: US)
  Receive Date: 20131224
  Receipt Date: 20140227
  Transmission Date: 20141002
  Serious: Yes (Death)
  Sender: FDA-Public Use
  Company Number: GXBR2013US002183

PATIENT
  Sex: Male
  Weight: 72.56 kg

DRUGS (1)
  1. ENOXAPARIN SODIUM [Suspect]
     Indication: PROPHYLAXIS
     Dosage: 100 MG, QD
     Route: 058
     Dates: start: 20121206

REACTIONS (1)
  - Pancreatic carcinoma [Fatal]
